FAERS Safety Report 23192968 (Version 1)
Quarter: 2023Q4

REPORT INFORMATION
  Report Type: Spontaneous
  Country: US (occurrence: US)
  Receive Date: 20231116
  Receipt Date: 20231116
  Transmission Date: 20240110
  Serious: No
  Sender: FDA-Public Use
  Company Number: US-SA-SAC20231109001385

PATIENT
  Age: 50 Year
  Sex: Female

DRUGS (2)
  1. DUPIXENT [Suspect]
     Active Substance: DUPILUMAB
     Indication: Neurodermatitis
     Dosage: 300 MG EVERY OTHER WEEK (QOW)
  2. METHOTREXATE [Suspect]
     Active Substance: METHOTREXATE
     Dosage: UNK

REACTIONS (4)
  - Headache [Unknown]
  - Fatigue [Unknown]
  - Trichorrhexis [Unknown]
  - Condition aggravated [Unknown]
